FAERS Safety Report 16361187 (Version 1)
Quarter: 2019Q2

REPORT INFORMATION
  Report Type: Report from Study
  Country: MX (occurrence: MX)
  Receive Date: 20190528
  Receipt Date: 20190528
  Transmission Date: 20190711
  Serious: Yes (Other)
  Sender: FDA-Public Use
  Company Number: PHHY2019MX122379

PATIENT
  Sex: Male

DRUGS (1)
  1. GALVUS MET [Suspect]
     Active Substance: METFORMIN HYDROCHLORIDE\VILDAGLIPTIN
     Indication: DIABETES MELLITUS
     Dosage: 2 DF (METFORMIN 50 MG, VILDAGLIPTIN 850 MG), QD
     Route: 065

REACTIONS (3)
  - Intentional self-injury [Unknown]
  - Feeling abnormal [Unknown]
  - Depression [Unknown]
